FAERS Safety Report 4546268-2 (Version None)
Quarter: 2005Q1

REPORT INFORMATION
  Report Type: 
  Country: None (occurrence: None)
  Receive Date: 20050106
  Receipt Date: 20041216
  Transmission Date: 20050727
  Serious: Yes (Hospitalization)
  Sender: FDA-Public Use
  Company Number: US-MERCK-0412USA02101

PATIENT
  Age: 53 Year
  Sex: Male

DRUGS (4)
  1. VIOXX [Suspect]
     Indication: ARTHRITIS
     Route: 048
     Dates: start: 20020301, end: 20020401
  2. ACCUPRIL [Concomitant]
     Route: 065
  3. INSULIN [Concomitant]
     Route: 065
  4. PEPCID [Concomitant]
     Route: 065

REACTIONS (5)
  - BRUXISM [None]
  - CEREBROVASCULAR ACCIDENT [None]
  - HEADACHE [None]
  - MUSCLE SPASMS [None]
  - TRANSIENT ISCHAEMIC ATTACK [None]
